FAERS Safety Report 11696834 (Version 2)
Quarter: 2017Q4

REPORT INFORMATION
  Report Type: Spontaneous
  Country: US (occurrence: US)
  Receive Date: 20151104
  Receipt Date: 20171024
  Transmission Date: 20180320
  Serious: No
  Sender: FDA-Public Use
  Company Number: US-PERRIGO-15US005411

PATIENT
  Sex: Female
  Weight: 58.5 kg

DRUGS (6)
  1. MESALAMINE RX 66.667 MG/ML 2N9 [Suspect]
     Active Substance: MESALAMINE
     Dosage: 4 G, QD
     Route: 054
  2. MESALAMINE RX 66.667 MG/ML 2N9 [Suspect]
     Active Substance: MESALAMINE
     Dosage: 4 G, QD
     Route: 054
  3. PREPARATION H HYDROCORTISONE [Concomitant]
     Active Substance: HYDROCORTISONE
     Indication: PRODUCT USED FOR UNKNOWN INDICATION
     Dosage: UNK
     Route: 065
  4. MESALAMINE RX 66.667 MG/ML 2N9 [Suspect]
     Active Substance: MESALAMINE
     Indication: COLITIS ULCERATIVE
     Dosage: 4 G, PRN
     Route: 054
     Dates: start: 2006
  5. MESALAMINE RX 66.667 MG/ML 2N9 [Suspect]
     Active Substance: MESALAMINE
     Dosage: 4 G, QD
     Route: 054
  6. PRILOSEC [Concomitant]
     Active Substance: OMEPRAZOLE MAGNESIUM
     Indication: GASTROOESOPHAGEAL REFLUX DISEASE
     Dosage: UNK
     Route: 065
     Dates: start: 2014

REACTIONS (2)
  - Inappropriate schedule of drug administration [Not Recovered/Not Resolved]
  - Proctalgia [Not Recovered/Not Resolved]

NARRATIVE: CASE EVENT DATE: 2006
